FAERS Safety Report 8308805-1 (Version None)
Quarter: 2012Q1

REPORT INFORMATION
  Report Type: 
  Country: None (occurrence: None)
  Receive Date: 20120327
  Receipt Date: 20110301
  Transmission Date: 20120608
  Serious: Yes (Other)
  Sender: FDA-Public Use
  Company Number: PHHY2011US16814

PATIENT
  Age: 61 Year
  Sex: Female

DRUGS (1)
  1. GLEEVEC [Suspect]
     Indication: CHRONIC MYELOID LEUKAEMIA
     Dosage: 100 MG, BID, ORAL
     Route: 048
     Dates: start: 20090616, end: 20110301

REACTIONS (1)
  - PERICARDIAL EFFUSION [None]
